FAERS Safety Report 12215628 (Version 1)
Quarter: 2016Q1

REPORT INFORMATION
  Report Type: Report from Study
  Country: US (occurrence: US)
  Receive Date: 20160328
  Receipt Date: 20160328
  Transmission Date: 20160526
  Serious: Yes (Other)
  Sender: FDA-Public Use
  Company Number: US-GILEAD-2016-0205046

PATIENT
  Age: 63 Year
  Sex: Female

DRUGS (1)
  1. LEDIPASVIR/SOFOSBUVIR [Suspect]
     Active Substance: LEDIPASVIR\SOFOSBUVIR
     Indication: HEPATITIS C
     Dosage: 1 DF, QD
     Route: 048
     Dates: start: 20160228, end: 20160306

REACTIONS (11)
  - Paraesthesia [Unknown]
  - Hypertension [Unknown]
  - Agitation [Unknown]
  - Hallucination, auditory [Unknown]
  - Anger [Unknown]
  - Dry eye [Unknown]
  - Asthenia [Unknown]
  - Disturbance in attention [Unknown]
  - Abnormal dreams [Unknown]
  - Photophobia [Unknown]
  - Palpitations [Unknown]

NARRATIVE: CASE EVENT DATE: 2016
